FAERS Safety Report 5535727-1 (Version None)
Quarter: 2007Q4

REPORT INFORMATION
  Report Type: 
  Country: None (occurrence: None)
  Receive Date: 20071204
  Receipt Date: 20071204
  Transmission Date: 20080405
  Serious: Yes (Hospitalization)
  Sender: FDA-Public Use
  Company Number: None

PATIENT
  Sex: Female
  Weight: 63 kg

DRUGS (4)
  1. FLUOROURACIL [Suspect]
     Dosage: 6680 MG
  2. MITOMYCIN [Suspect]
     Dosage: 16.7 MG
  3. KLONOPIN [Concomitant]
  4. MS CONTIN [Concomitant]

REACTIONS (9)
  - BLOOD BICARBONATE DECREASED [None]
  - BLOOD PRESSURE INCREASED [None]
  - CLOSTRIDIAL INFECTION [None]
  - DIVERTICULUM [None]
  - ENDOSCOPY ABNORMAL [None]
  - GASTROINTESTINAL MUCOSAL DISORDER [None]
  - HAEMOGLOBIN ABNORMAL [None]
  - HYPOALBUMINAEMIA [None]
  - ILEUS [None]
